FAERS Safety Report 8202877-0 (Version None)
Quarter: 2012Q1

REPORT INFORMATION
  Report Type: 
  Country: None (occurrence: None)
  Receive Date: 20120312
  Receipt Date: 20120312
  Transmission Date: 20120608
  Serious: No
  Sender: FDA-Public Use
  Company Number: None

PATIENT
  Age: 37 Year
  Sex: Female
  Weight: 52.163 kg

DRUGS (1)
  1. ZOLOFT [Suspect]
     Indication: MAJOR DEPRESSION
     Dosage: 50.0 MG
     Route: 048
     Dates: start: 20110310, end: 20110330

REACTIONS (2)
  - ANORGASMIA [None]
  - SEXUAL DYSFUNCTION [None]
